FAERS Safety Report 25813195 (Version 1)
Quarter: 2025Q3

REPORT INFORMATION
  Report Type: Spontaneous
  Country: JP (occurrence: JP)
  Receive Date: 20250917
  Receipt Date: 20250917
  Transmission Date: 20251020
  Serious: Yes (Other)
  Sender: NOVARTIS
  Company Number: JP-002147023-NVSJ2025JP009170

PATIENT

DRUGS (1)
  1. EVEROLIMUS [Suspect]
     Active Substance: EVEROLIMUS
     Indication: Rhabdomyoma
     Route: 065

REACTIONS (3)
  - Rhabdomyoma [Unknown]
  - Malignant neoplasm progression [Unknown]
  - Off label use [Unknown]
